FAERS Safety Report 4331811-9 (Version None)
Quarter: 2004Q2

REPORT INFORMATION
  Report Type: 
  Country: None (occurrence: None)
  Receive Date: 20040405
  Receipt Date: 20030925
  Transmission Date: 20050107
  Serious: No
  Sender: FDA-Public Use
  Company Number: US-GLAXOSMITHKLINE-A0427523A

PATIENT
  Age: 51 Year
  Sex: Female

DRUGS (11)
  1. FLOVENT [Suspect]
     Indication: ASTHMA
     Dosage: 2PUFF TWICE PER DAY
     Route: 055
  2. SEREVENT [Suspect]
     Indication: ASTHMA
     Dosage: 1PUFF TWICE PER DAY
     Route: 055
     Dates: start: 20030701, end: 20030901
  3. VENTOLIN [Suspect]
     Indication: ASTHMA
     Dosage: 1PUFF PER DAY
     Route: 055
  4. AMINOPHYLLINE [Concomitant]
  5. MAXAIR [Concomitant]
  6. AZMACORT [Concomitant]
  7. NORVASC [Concomitant]
  8. RANITIDINE [Concomitant]
  9. ALLEGRA [Concomitant]
  10. AUGMENTIN [Concomitant]
  11. CALCIUM [Concomitant]

REACTIONS (9)
  - BLOOD PRESSURE INCREASED [None]
  - BRONCHIAL IRRITATION [None]
  - COUGH [None]
  - DYSPNOEA EXACERBATED [None]
  - INCREASED UPPER AIRWAY SECRETION [None]
  - LARYNGITIS [None]
  - OBSTRUCTIVE AIRWAYS DISORDER [None]
  - PALPITATIONS [None]
  - WHEEZING [None]
